FAERS Safety Report 10686870 (Version 1)
Quarter: 2015Q1

REPORT INFORMATION
  Report Type: Spontaneous
  Country: SE (occurrence: SE)
  Receive Date: 20150102
  Receipt Date: 20150102
  Transmission Date: 20150720
  Serious: Yes (Hospitalization)
  Sender: FDA-Public Use
  Company Number: SE-JNJFOC-20141216113

PATIENT
  Age: 30 Year
  Sex: Female

DRUGS (3)
  1. ALVEDON [Suspect]
     Active Substance: ACETAMINOPHEN
     Indication: PRODUCT USED FOR UNKNOWN INDICATION
     Dosage: 7 TABLETS OF 500 MG
     Route: 048
     Dates: start: 20131104, end: 20131104
  2. DESLORATADINE. [Concomitant]
     Active Substance: DESLORATADINE
     Route: 065
  3. IPREN [Suspect]
     Active Substance: IBUPROFEN
     Indication: PRODUCT USED FOR UNKNOWN INDICATION
     Dosage: 7 TABLETS OF 400 MG
     Route: 048
     Dates: start: 20131104, end: 20131104

REACTIONS (3)
  - Suicidal ideation [Recovered/Resolved]
  - Fatigue [Recovered/Resolved]
  - Toxicity to various agents [Recovered/Resolved]

NARRATIVE: CASE EVENT DATE: 20131104
